FAERS Safety Report 21328044 (Version 1)
Quarter: 2022Q3

REPORT INFORMATION
  Report Type: Report from Study
  Country: CA (occurrence: CA)
  Receive Date: 20220913
  Receipt Date: 20220913
  Transmission Date: 20221027
  Serious: Yes (Hospitalization)
  Sender: FDA-Public Use
  Company Number: CA-GLAXOSMITHKLINE-CA2022129299

PATIENT

DRUGS (1)
  1. MEPOLIZUMAB [Suspect]
     Active Substance: MEPOLIZUMAB
     Indication: Asthma
     Dosage: 100 MG, Z,EVERY 4 WEEKS
     Route: 058
     Dates: start: 20220712

REACTIONS (3)
  - Oxygen saturation decreased [Recovering/Resolving]
  - Fatigue [Recovering/Resolving]
  - Wheezing [Recovering/Resolving]
